FAERS Safety Report 11129830 (Version 2)
Quarter: 2015Q3

REPORT INFORMATION
  Report Type: Spontaneous
  Country: US (occurrence: US)
  Receive Date: 20150521
  Receipt Date: 20150826
  Transmission Date: 20151125
  Serious: No
  Sender: FDA-Public Use
  Company Number: US-009507513-1505USA009873

PATIENT
  Age: 18 Year
  Sex: Female
  Weight: 58.96 kg

DRUGS (1)
  1. NEXPLANON [Suspect]
     Active Substance: ETONOGESTREL
     Indication: CONTRACEPTION
     Dosage: 1 DF, IN UNSPECIFIED ARM
     Route: 059
     Dates: start: 20150504

REACTIONS (7)
  - Dizziness [Unknown]
  - Nausea [Unknown]
  - Hypoaesthesia [Unknown]
  - Abdominal pain [Unknown]
  - Urinary tract infection [Unknown]
  - Vomiting [Unknown]
  - Vaginal haemorrhage [Unknown]

NARRATIVE: CASE EVENT DATE: 2015
